FAERS Safety Report 8622880-6 (Version None)
Quarter: 2012Q3

REPORT INFORMATION
  Report Type: 
  Country: None (occurrence: None)
  Receive Date: 20120814
  Receipt Date: 20120809
  Transmission Date: 20120928
  Serious: Yes (Other)
  Sender: FDA-Public Use
  Company Number: 2012033044

PATIENT
  Age: 41 Year
  Sex: Female

DRUGS (4)
  1. LAMOTRIGINE [Concomitant]
  2. HIZENTRA [Suspect]
     Indication: IMMUNODEFICIENCY
     Dosage: 10 ML QD SUBCUTANEOUS
     Route: 058
     Dates: start: 20120429, end: 20120523
  3. LYRICA [Concomitant]
  4. FERRO SANOL (FERROUS SULFATE) [Concomitant]

REACTIONS (2)
  - CONDITION AGGRAVATED [None]
  - EPILEPSY [None]
